FAERS Safety Report 7205765-1 (Version None)
Quarter: 2010Q4

REPORT INFORMATION
  Report Type: 
  Country: None (occurrence: None)
  Receive Date: 20101231
  Receipt Date: 20101223
  Transmission Date: 20110411
  Serious: Yes (Other)
  Sender: FDA-Public Use
  Company Number: US-PFIZER INC-2010180070

PATIENT
  Age: 4 Year
  Sex: Female
  Weight: 18.14 kg

DRUGS (5)
  1. CHILDREN'S DIMETAPP COLD AND ALLERGY [Suspect]
     Indication: RHINORRHOEA
     Dosage: 1 DF, 3X/DAY
     Route: 048
     Dates: start: 20101201, end: 20101222
  2. CHILDREN'S DIMETAPP COLD AND ALLERGY [Suspect]
     Indication: NASAL CONGESTION
  3. CHILDREN'S DIMETAPP COLD AND ALLERGY [Suspect]
     Indication: SNEEZING
  4. CHILDREN'S DIMETAPP COLD AND ALLERGY [Suspect]
     Indication: LACRIMATION INCREASED
  5. CHILDREN'S DIMETAPP COLD AND ALLERGY [Suspect]
     Indication: COUGH

REACTIONS (2)
  - DRUG INEFFECTIVE [None]
  - PYREXIA [None]
